FAERS Safety Report 7831501-1 (Version None)
Quarter: 2011Q4

REPORT INFORMATION
  Report Type: 
  Country: None (occurrence: None)
  Receive Date: 20111021
  Receipt Date: 20111021
  Transmission Date: 20120403
  Serious: Yes (Death)
  Sender: FDA-Public Use
  Company Number: None

PATIENT
  Age: 56 Year
  Sex: Male
  Weight: 97.068 kg

DRUGS (2)
  1. CARBOPLATIN [Concomitant]
     Dosage: AVC OF 2 IN 100 CC NS
     Route: 041
     Dates: start: 20080505, end: 20080515
  2. GEMZAR [Suspect]
     Indication: BLADDER CANCER
     Route: 041
     Dates: start: 20080505, end: 20080515

REACTIONS (3)
  - COAGULOPATHY [None]
  - PANCYTOPENIA [None]
  - TRANSAMINASES INCREASED [None]
